FAERS Safety Report 5079808-8 (Version None)
Quarter: 2006Q3

REPORT INFORMATION
  Report Type: 
  Country: None (occurrence: None)
  Receive Date: 20060720
  Receipt Date: 20060524
  Transmission Date: 20061208
  Serious: Yes (Other)
  Sender: FDA-Public Use
  Company Number: 2005078899

PATIENT
  Sex: Female
  Weight: 74.8435 kg

DRUGS (5)
  1. CELEBREX [Suspect]
     Indication: ARTHRITIS
     Dosage: 200 MG (200 MG,1 IN 1 D),ORAL
     Route: 048
  2. DIGOXIN [Concomitant]
  3. WARFARIN SODIUM [Concomitant]
  4. LOTENSIN [Concomitant]
  5. LASIX [Concomitant]

REACTIONS (10)
  - ARTHRITIS [None]
  - BODY HEIGHT DECREASED [None]
  - FALL [None]
  - FLUID RETENTION [None]
  - JOINT DISLOCATION [None]
  - LOSS OF CONSCIOUSNESS [None]
  - MYOCARDIAL INFARCTION [None]
  - RASH [None]
  - RASH PRURITIC [None]
  - UPPER LIMB FRACTURE [None]
